FAERS Safety Report 5796550-6 (Version None)
Quarter: 2008Q2

REPORT INFORMATION
  Report Type: 
  Country: None (occurrence: None)
  Receive Date: 20080630
  Receipt Date: 20080630
  Transmission Date: 20081010
  Serious: Yes (Other)
  Sender: FDA-Public Use
  Company Number: None

PATIENT
  Age: 56 Year
  Sex: Female
  Weight: 58.9676 kg

DRUGS (2)
  1. SOTRADECOL [Suspect]
     Indication: SPIDER VEIN
     Dosage: ONE TIME INJECTION
     Dates: start: 20080422, end: 20080422
  2. GLYCERINE [Suspect]
     Dosage: ONE TIME INJECTION
     Dates: start: 20080422, end: 20080422

REACTIONS (9)
  - ACNE [None]
  - ALOPECIA [None]
  - ARTHRALGIA [None]
  - DRUG TOXICITY [None]
  - FATIGUE [None]
  - PAIN IN EXTREMITY [None]
  - POISONING [None]
  - URTICARIA [None]
  - WEIGHT BEARING DIFFICULTY [None]
